FAERS Safety Report 9880452 (Version 1)
Quarter: 2014Q1

REPORT INFORMATION
  Report Type: Spontaneous
  Country: US (occurrence: US)
  Receive Date: 20140207
  Receipt Date: 20140207
  Transmission Date: 20141002
  Serious: Yes (Other)
  Sender: FDA-Public Use
  Company Number: US-ACCORD-021665

PATIENT
  Sex: 0

DRUGS (1)
  1. MONTELUKAST [Suspect]
     Indication: PRODUCT USED FOR UNKNOWN INDICATION
     Dosage: ACCORD^ MONTELUKAST SODIUM 10 MG TABLET

REACTIONS (2)
  - Asthma [Unknown]
  - Muscle spasms [Unknown]
